FAERS Safety Report 24019171 (Version 1)
Quarter: 2024Q2

REPORT INFORMATION
  Report Type: Spontaneous
  Country: BR (occurrence: BR)
  Receive Date: 20240627
  Receipt Date: 20240627
  Transmission Date: 20240715
  Serious: Yes (Hospitalization, Other)
  Sender: FDA-Public Use
  Company Number: BR-BAYER-2024A088393

PATIENT
  Age: 34 Year
  Sex: Female

DRUGS (1)
  1. MIRENA [Suspect]
     Active Substance: LEVONORGESTREL
     Indication: Contraception
     Dosage: 20?G/DAY
     Route: 015
     Dates: start: 20230327, end: 20240601

REACTIONS (7)
  - Uterine perforation [None]
  - Blood loss anaemia [None]
  - Abdominal pain lower [None]
  - Discomfort [None]
  - Procedural pain [Recovering/Resolving]
  - Post procedural haemorrhage [Recovering/Resolving]
  - Hormone level abnormal [None]

NARRATIVE: CASE EVENT DATE: 20230101
